FAERS Safety Report 7320798-2 (Version None)
Quarter: 2011Q1

REPORT INFORMATION
  Report Type: 
  Country: None (occurrence: None)
  Receive Date: 20110228
  Receipt Date: 20110221
  Transmission Date: 20110831
  Serious: Yes (Other)
  Sender: FDA-Public Use
  Company Number: US-ROCHE-758675

PATIENT
  Age: 55 Year
  Sex: Male

DRUGS (7)
  1. LOVENOX [Concomitant]
  2. PROCRIT [Concomitant]
  3. COUMADIN [Concomitant]
  4. PEGASYS [Suspect]
     Route: 065
     Dates: start: 20101022
  5. WELLBUTRIN [Concomitant]
  6. CELEXA [Concomitant]
  7. REMERON [Concomitant]

REACTIONS (2)
  - SWOLLEN TONGUE [None]
  - THROMBOSIS [None]
